FAERS Safety Report 19496954 (Version 1)
Quarter: 2021Q3

REPORT INFORMATION
  Report Type: Spontaneous
  Country: US (occurrence: US)
  Receive Date: 20210702
  Receipt Date: 20210702
  Transmission Date: 20211014
  Serious: Yes (Hospitalization)
  Sender: FDA-Public Use
  Company Number: None

PATIENT
  Age: 24 Year
  Sex: Male
  Weight: 157.04 kg

DRUGS (6)
  1. METHOTREXATE. [Suspect]
     Active Substance: METHOTREXATE
     Dates: end: 20210621
  2. DAUNORUBICIN [Suspect]
     Active Substance: DAUNORUBICIN
     Dates: end: 20210621
  3. PREDNISOLONE. [Suspect]
     Active Substance: PREDNISOLONE
     Dates: end: 20210628
  4. VINCRISTINE SULFATE. [Suspect]
     Active Substance: VINCRISTINE SULFATE
     Dates: end: 20210621
  5. CYTARABINE. [Suspect]
     Active Substance: CYTARABINE
     Dates: end: 20210624
  6. ONCASPAR [Suspect]
     Active Substance: PEGASPARGASE
     Dates: end: 20210617

REACTIONS (11)
  - Malaise [None]
  - Anaemia [None]
  - Body temperature increased [None]
  - Hypotension [None]
  - Thrombocytopenia [None]
  - Abdominal pain [None]
  - Coagulopathy [None]
  - Nausea [None]
  - Abdominal discomfort [None]
  - Vomiting [None]
  - Pain [None]

NARRATIVE: CASE EVENT DATE: 20210628
